FAERS Safety Report 12859019 (Version 1)
Quarter: 2016Q4

REPORT INFORMATION
  Report Type: Spontaneous
  Country: US (occurrence: US)
  Receive Date: 20161018
  Receipt Date: 20161018
  Transmission Date: 20170207
  Serious: No
  Sender: FDA-Public Use
  Company Number: US-NOVOPROD-502485

PATIENT
  Sex: Female

DRUGS (1)
  1. TRESIBA FLEXTOUCH U200 [Suspect]
     Active Substance: INSULIN DEGLUDEC
     Indication: PRODUCT USED FOR UNKNOWN INDICATION
     Dosage: UNK
     Route: 058
     Dates: start: 201606

REACTIONS (7)
  - Drug ineffective [Unknown]
  - Headache [Unknown]
  - Blood glucose increased [Unknown]
  - Joint swelling [Unknown]
  - Feeling abnormal [Unknown]
  - Fluid retention [Unknown]
  - Peripheral swelling [Unknown]
